FAERS Safety Report 8788978 (Version 3)
Quarter: 2013Q1

REPORT INFORMATION
  Report Type: Spontaneous
  Country: US (occurrence: US)
  Receive Date: 20120917
  Receipt Date: 20130119
  Transmission Date: 20140127
  Serious: No
  Sender: FDA-Public Use
  Company Number: US-009507513-1209USA005069

PATIENT
  Sex: Male

DRUGS (3)
  1. VICTRELIS [Suspect]
     Indication: HEPATITIS C
     Dosage: 800 MG, THREE TIMES PER DAY
     Route: 048
     Dates: start: 201207, end: 201209
  2. PEGASYS [Suspect]
     Dosage: 180 MICROGRAM, QW
     Route: 048
  3. RIBASPHERE [Suspect]
     Dosage: 600 MG, BID
     Route: 048

REACTIONS (6)
  - Pyrexia [Unknown]
  - Vomiting [Unknown]
  - Nausea [Unknown]
  - Diarrhoea [Unknown]
  - Rash erythematous [Unknown]
  - Laboratory test abnormal [Unknown]
